FAERS Safety Report 9383117 (Version 2)
Quarter: 2013Q3

REPORT INFORMATION
  Report Type: Spontaneous
  Country: GB (occurrence: GB)
  Receive Date: 20130704
  Receipt Date: 20130802
  Transmission Date: 20140515
  Serious: Yes (Death)
  Sender: FDA-Public Use
  Company Number: GB-UCBSA-086160

PATIENT
  Sex: Male

DRUGS (2)
  1. VIMPAT [Suspect]
     Dates: start: 20130509
  2. THYROXINE [Concomitant]

REACTIONS (2)
  - Death [Fatal]
  - Dry eye [Unknown]
